FAERS Safety Report 15395767 (Version 1)
Quarter: 2018Q3

REPORT INFORMATION
  Report Type: Spontaneous
  Country: US (occurrence: US)
  Receive Date: 20180912
  Receipt Date: 20180912
  Transmission Date: 20181010
  Serious: Yes (Hospitalization)
  Sender: FDA-Public Use
  Company Number: None

PATIENT
  Sex: Male

DRUGS (15)
  1. ASPIRIN. [Concomitant]
     Active Substance: ASPIRIN
  2. ZOLPIDEM [Concomitant]
     Active Substance: ZOLPIDEM\ZOLPIDEM TARTRATE
  3. GOCOVRI [Concomitant]
     Active Substance: AMANTADINE
  4. ATORVASTATIN [Concomitant]
     Active Substance: ATORVASTATIN
  5. GABAPENTIN. [Concomitant]
     Active Substance: GABAPENTIN
  6. NORTHERA [Concomitant]
     Active Substance: DROXIDOPA
  7. FOLIC ACID. [Concomitant]
     Active Substance: FOLIC ACID
  8. XADAGO [Concomitant]
     Active Substance: SAFINAMIDE MESYLATE
  9. INDOMETHACIN. [Concomitant]
     Active Substance: INDOMETHACIN
  10. FUROSEMIDE. [Concomitant]
     Active Substance: FUROSEMIDE
  11. LEVOTHYROXIN [Concomitant]
     Active Substance: LEVOTHYROXINE
  12. OMEGA 3 [Concomitant]
     Active Substance: OMEGA-3 FATTY ACIDS
  13. SUTENT [Suspect]
     Active Substance: SUNITINIB MALATE
     Indication: RENAL CANCER
     Route: 048
     Dates: start: 20170127
  14. GLIPIZIDE. [Concomitant]
     Active Substance: GLIPIZIDE
  15. IRON [Concomitant]
     Active Substance: IRON

REACTIONS (1)
  - Hallucination [None]
